FAERS Safety Report 11096422 (Version 1)
Quarter: 2015Q2

REPORT INFORMATION
  Report Type: Spontaneous
  Country: US (occurrence: None)
  Receive Date: 20150505
  Receipt Date: 20150505
  Transmission Date: 20150821
  Serious: Yes (Hospitalization)
  Sender: FDA-Public Use
  Company Number: UCM201504-000284

PATIENT
  Age: 17 Year
  Sex: Male

DRUGS (8)
  1. AMLODIPINE BESYLATE. [Suspect]
     Active Substance: AMLODIPINE BESYLATE
  2. HYDROCHLOROTHIAZIDE (HYDROCHLOROTHIAZIDE) [Concomitant]
     Active Substance: HYDROCHLOROTHIAZIDE
  3. VENLAFEXINE (VENLAFEXINE) [Concomitant]
  4. DEXAMFETAMINE (DEXAMFETAMINE) [Concomitant]
  5. LEXAPRO [Concomitant]
     Active Substance: ESCITALOPRAM OXALATE
  6. BUSPIRON (BUSPIRON) [Concomitant]
  7. PROZAC (FLUOXETINE) [Concomitant]
  8. CLONAZEPAM (CLONAZEPAM) [Concomitant]
     Active Substance: CLONAZEPAM

REACTIONS (5)
  - Atrioventricular block second degree [None]
  - Hypotension [None]
  - Overdose [None]
  - Shock [None]
  - Lethargy [None]
